FAERS Safety Report 5131578-0 (Version None)
Quarter: 2006Q4

REPORT INFORMATION
  Report Type: 
  Country: None (occurrence: None)
  Receive Date: 20061020
  Receipt Date: 20061010
  Transmission Date: 20070319
  Serious: Yes (Other)
  Sender: FDA-Public Use
  Company Number: PHEH2006US12730

PATIENT
  Age: 61 Year
  Sex: Male

DRUGS (1)
  1. ZOMETA [Suspect]
     Indication: PROSTATE CANCER METASTATIC
     Dosage: EVERY 3-4 WEEKS
     Dates: start: 20050501, end: 20060701

REACTIONS (5)
  - BONE DISORDER [None]
  - OSTEONECROSIS [None]
  - PAIN [None]
  - THERAPY NON-RESPONDER [None]
  - WOUND [None]
